FAERS Safety Report 5303523-6 (Version None)
Quarter: 2007Q2

REPORT INFORMATION
  Report Type: 
  Country: None (occurrence: None)
  Receive Date: 20070420
  Receipt Date: 20070415
  Transmission Date: 20071010
  Serious: Yes (Hospitalization)
  Sender: FDA-Public Use
  Company Number: US-KINGPHARMUSA00001-K200700452

PATIENT

DRUGS (1)
  1. LEVOXYL [Suspect]
     Dosage: 75 MCG, UNK
     Route: 048
     Dates: start: 19460601

REACTIONS (4)
  - BLOOD GLUCOSE INCREASED [None]
  - DYSPEPSIA [None]
  - FATIGUE [None]
  - UNEVALUABLE EVENT [None]
